FAERS Safety Report 4775132-9 (Version None)
Quarter: 2005Q3

REPORT INFORMATION
  Report Type: 
  Country: None (occurrence: None)
  Receive Date: 20050920
  Receipt Date: 20050907
  Transmission Date: 20060218
  Serious: Yes (Hospitalization, Other)
  Sender: FDA-Public Use
  Company Number: 2005127363

PATIENT
  Age: 85 Year
  Sex: Female
  Weight: 45.3597 kg

DRUGS (6)
  1. NORVASC [Suspect]
     Indication: HYPERTENSION
     Dosage: 5 MG (5 MG, 1 IN 1 D), ORAL
     Route: 048
     Dates: start: 20040101, end: 20050101
  2. GLYBURIDE [Concomitant]
  3. PLAVIX [Concomitant]
  4. LEVOXYL [Concomitant]
  5. FOSMAX (ALENDRONATE SODIUM) [Concomitant]
  6. VITAMINS (VITAMINS) [Concomitant]

REACTIONS (6)
  - ABASIA [None]
  - ASTHENIA [None]
  - FALL [None]
  - HEAD INJURY [None]
  - HYPOTENSION [None]
  - SWELLING [None]
